FAERS Safety Report 4609653-6 (Version None)
Quarter: 2005Q1

REPORT INFORMATION
  Report Type: 
  Country: None (occurrence: None)
  Receive Date: 20050314
  Receipt Date: 20050314
  Transmission Date: 20050727
  Serious: Yes (Death, Hospitalization, Disabling)
  Sender: FDA-Public Use
  Company Number: None

PATIENT
  Sex: Female
  Weight: 74.8435 kg

DRUGS (2)
  1. ELIMITE [Suspect]
     Indication: ACARODERMATITIS
     Dosage: ALL UNTIL USED TOPICAL
     Route: 061
     Dates: start: 20040316, end: 20040430
  2. ELIDEL [Suspect]
     Indication: ECZEMA
     Dosage: ALL UNTIL USED TOPICAL
     Route: 061
     Dates: start: 20040316, end: 20040430

REACTIONS (5)
  - B-CELL LYMPHOMA [None]
  - BACK PAIN [None]
  - BODY TEMPERATURE INCREASED [None]
  - EXPOSURE TO TOXIC AGENT [None]
  - HIV INFECTION [None]
